FAERS Safety Report 11043165 (Version 1)
Quarter: 2015Q2

REPORT INFORMATION
  Report Type: Other
  Country: US (occurrence: US)
  Receive Date: 20150417
  Receipt Date: 20150417
  Transmission Date: 20150821
  Serious: Yes (Hospitalization)
  Sender: FDA-Public Use
  Company Number: US-SHIRE-US201503165

PATIENT
  Age: 59 Year
  Sex: Female

DRUGS (4)
  1. CINRYZE [Suspect]
     Active Substance: HUMAN C1-ESTERASE INHIBITOR
     Indication: PROPHYLAXIS
  2. FIRAZYR [Suspect]
     Active Substance: ICATIBANT ACETATE
     Indication: PROPHYLAXIS
     Dosage: 30 MG, UNKNOWN
     Route: 058
     Dates: start: 2015, end: 2015
  3. KALBITOR [Concomitant]
     Active Substance: ECALLANTIDE
     Indication: PROPHYLAXIS
     Dosage: UNK UNK, UNKNOWN
     Route: 065
     Dates: start: 2015
  4. CINRYZE [Suspect]
     Active Substance: HUMAN C1-ESTERASE INHIBITOR
     Indication: HEREDITARY ANGIOEDEMA
     Dosage: 1000 UNITS, OTHER (EVERY 4 DAYS)
     Route: 042
     Dates: start: 20140626

REACTIONS (2)
  - Back disorder [Unknown]
  - Product use issue [Unknown]

NARRATIVE: CASE EVENT DATE: 2015
